FAERS Safety Report 6267235-7 (Version None)
Quarter: 2009Q3

REPORT INFORMATION
  Report Type: 
  Country: None (occurrence: None)
  Receive Date: 20090714
  Receipt Date: 20090625
  Transmission Date: 20100115
  Serious: Yes (Other)
  Sender: FDA-Public Use
  Company Number: DE-PFIZER INC-2009236166

PATIENT

DRUGS (1)
  1. CYTOTEC [Suspect]
     Indication: LABOUR INDUCTION
     Dosage: 100 UG, AS NEEDED
     Route: 064
     Dates: start: 20051021, end: 20051022

REACTIONS (1)
  - ASPHYXIA [None]
